FAERS Safety Report 7076621-7 (Version None)
Quarter: 2010Q4

REPORT INFORMATION
  Report Type: 
  Country: None (occurrence: None)
  Receive Date: 20101101
  Receipt Date: 20101021
  Transmission Date: 20110411
  Serious: Yes (Hospitalization)
  Sender: FDA-Public Use
  Company Number: US-BAYER-201037903NA

PATIENT
  Age: 52 Year
  Sex: Male

DRUGS (21)
  1. LEUKINE [Suspect]
     Indication: CHEMOTHERAPY CYTOKINE PROPHYLAXIS
     Dosage: 500 MCG /DAY WAS PRESCRIBED, PT MAY HAVE RECEIVED 1000 MCG/DAY (THOUGH THIS IS NOT CONFIRMED).
     Route: 058
     Dates: start: 20101017, end: 20101019
  2. ALBUTEROL [Concomitant]
  3. AMITRIPTYLINE HCL [Concomitant]
  4. BENZONATATE [Concomitant]
  5. ASPIRIN [Concomitant]
  6. ENOXAPARIN SODIUM [Concomitant]
  7. FORMOTEROL FUMARATE [Concomitant]
  8. ATROVENT [Concomitant]
     Dosage: NEBULIZER TREATMENTS
  9. LORAZEPAM [Concomitant]
  10. METFORMIN [Concomitant]
  11. METOPROLOL [Concomitant]
  12. MOMETASONE FUROATE [Concomitant]
  13. MORPHINE [Concomitant]
  14. NITROGLYCERIN [Concomitant]
  15. PRILOSEC [Concomitant]
  16. OXYCODONE [Concomitant]
  17. PROMETHAZINE [Concomitant]
  18. SENNA [Concomitant]
  19. SIMVASTATIN [Concomitant]
  20. ACETAMINOPHEN [Concomitant]
  21. VANCOMYCIN [Concomitant]

REACTIONS (3)
  - CLOSTRIDIAL INFECTION [None]
  - DIARRHOEA [None]
  - PYREXIA [None]
